FAERS Safety Report 17198807 (Version 1)
Quarter: 2019Q4

REPORT INFORMATION
  Report Type: Spontaneous
  Country: US (occurrence: US)
  Receive Date: 20191203
  Receipt Date: 20191203
  Transmission Date: 20200122
  Serious: Yes (Other)
  Sender: FDA-Public Use
  Company Number: None

PATIENT
  Age: 52 Year
  Sex: Male

DRUGS (2)
  1. BUPROPION 150MG [Suspect]
     Active Substance: BUPROPION HYDROCHLORIDE
     Indication: PERSISTENT DEPRESSIVE DISORDER
     Route: 048
     Dates: start: 201908, end: 201910
  2. BUPROPION 300MG [Suspect]
     Active Substance: BUPROPION
     Indication: PERSISTENT DEPRESSIVE DISORDER
     Route: 048
     Dates: start: 201908, end: 201910

REACTIONS (2)
  - Condition aggravated [None]
  - Drug ineffective [None]

NARRATIVE: CASE EVENT DATE: 201908
